FAERS Safety Report 8923396 (Version 1)
Quarter: 2012Q4

REPORT INFORMATION
  Report Type: Report from Study
  Country: CA (occurrence: CA)
  Receive Date: 20121123
  Receipt Date: 20121123
  Transmission Date: 20130627
  Serious: Yes (Other)
  Sender: FDA-Public Use
  Company Number: CA-JNJFOC-20121014097

PATIENT
  Sex: Male
  Weight: 60 kg

DRUGS (16)
  1. REMICADE [Suspect]
     Indication: CROHN^S DISEASE
     Route: 042
     Dates: start: 20120717
  2. REMICADE [Suspect]
     Indication: CROHN^S DISEASE
     Route: 042
     Dates: start: 20120522
  3. REMICADE [Suspect]
     Indication: CROHN^S DISEASE
     Route: 042
     Dates: start: 20120322
  4. REMICADE [Suspect]
     Indication: CROHN^S DISEASE
     Route: 042
     Dates: start: 20120126
  5. REMICADE [Suspect]
     Indication: CROHN^S DISEASE
     Route: 042
     Dates: start: 20111229
  6. REMICADE [Suspect]
     Indication: CROHN^S DISEASE
     Route: 042
     Dates: start: 20111130
  7. REMICADE [Suspect]
     Indication: CROHN^S DISEASE
     Route: 042
     Dates: start: 20120919
  8. REMICADE [Suspect]
     Indication: CROHN^S DISEASE
     Route: 042
     Dates: start: 20111215
  9. ANTIBIOTICS NOS [Suspect]
     Indication: INFECTION
     Route: 065
  10. IMURAN [Concomitant]
     Indication: CROHN^S DISEASE
     Route: 048
  11. CODEINE [Concomitant]
     Indication: ANTIDIARRHOEAL SUPPORTIVE CARE
     Route: 065
  12. CODEINE [Concomitant]
     Indication: PAIN
     Route: 065
  13. BENADRYL [Concomitant]
     Indication: PREMEDICATION
     Route: 042
  14. SOLU CORTEF [Concomitant]
     Indication: PREMEDICATION
     Route: 042
  15. AZATHIOPRINE [Concomitant]
     Route: 065
  16. PREDNISONE [Concomitant]
     Route: 065

REACTIONS (12)
  - Scrotal mass [Unknown]
  - Lichenification [Unknown]
  - Chest pain [Unknown]
  - Rhinitis [Not Recovered/Not Resolved]
  - Decubitus ulcer [Recovered/Resolved]
  - Scar [Unknown]
  - Mass [Unknown]
  - Ingrown hair [Not Recovered/Not Resolved]
  - Skin lesion [Not Recovered/Not Resolved]
  - Purulence [Not Recovered/Not Resolved]
  - Skin fissures [Not Recovered/Not Resolved]
  - Nasal ulcer [Not Recovered/Not Resolved]
